FAERS Safety Report 7269876-7 (Version None)
Quarter: 2011Q1

REPORT INFORMATION
  Report Type: 
  Country: None (occurrence: None)
  Receive Date: 20110202
  Receipt Date: 20110128
  Transmission Date: 20110831
  Serious: Yes (Death)
  Sender: FDA-Public Use
  Company Number: US-ASTELLAS-2011US000451

PATIENT

DRUGS (8)
  1. VITAMIN B12 NOS [Concomitant]
     Indication: SUPPLEMENTATION THERAPY
     Dosage: UNK
     Route: 065
  2. VITAMIN D [Concomitant]
     Indication: SUPPLEMENTATION THERAPY
     Dosage: UNK
     Route: 065
  3. FOSAMAX [Concomitant]
     Indication: SUPPLEMENTATION THERAPY
     Dosage: 70 MG, UID/QD
     Route: 048
  4. PROGRAF [Suspect]
     Indication: LIVER TRANSPLANT
     Dosage: 6 MG, UID/QD
     Route: 048
  5. LISINOPRIL [Concomitant]
     Indication: HYPERTENSION
     Dosage: 5 MG, UID/QD
     Route: 048
  6. TRAMADOL HCL [Concomitant]
     Indication: SEDATIVE THERAPY
     Dosage: 50 MG, UID/QD
     Route: 048
  7. AMBIEN [Concomitant]
     Indication: SLEEP DISORDER
     Dosage: 10 MG, UID/QD
     Route: 048
  8. CELLCEPT [Concomitant]
     Indication: LIVER TRANSPLANT
     Dosage: 500 MG, UID/QD
     Route: 048

REACTIONS (1)
  - OESOPHAGEAL CARCINOMA [None]
